FAERS Safety Report 10493841 (Version 3)
Quarter: 2015Q3

REPORT INFORMATION
  Report Type: Spontaneous
  Country: US (occurrence: US)
  Receive Date: 20141003
  Receipt Date: 20150818
  Transmission Date: 20151125
  Serious: No
  Sender: FDA-Public Use
  Company Number: US-GILEAD-2014-0117106

PATIENT
  Age: 67 Year
  Sex: Male

DRUGS (4)
  1. LETAIRIS [Suspect]
     Active Substance: AMBRISENTAN
     Indication: PRODUCT USED FOR UNKNOWN INDICATION
     Dosage: 5 MG, QD
     Route: 065
     Dates: start: 20140814
  2. REMODULIN [Concomitant]
     Active Substance: TREPROSTINIL
  3. ADCIRCA [Concomitant]
     Active Substance: TADALAFIL
  4. COUMADIN [Concomitant]
     Active Substance: WARFARIN SODIUM

REACTIONS (16)
  - Myalgia [Unknown]
  - Oedema [Unknown]
  - Arthralgia [Unknown]
  - Fatigue [Unknown]
  - Back pain [Unknown]
  - Constipation [Unknown]
  - Headache [Unknown]
  - Cyanosis [Unknown]
  - Oedema peripheral [Unknown]
  - Memory impairment [Unknown]
  - Pain in jaw [Unknown]
  - Weight increased [Unknown]
  - Oxygen supplementation [Unknown]
  - Decreased appetite [Unknown]
  - Pain in extremity [Unknown]
  - Dyspnoea [Unknown]
